FAERS Safety Report 14508902 (Version 1)
Quarter: 2018Q1

REPORT INFORMATION
  Report Type: Report from Study
  Country: AR (occurrence: AR)
  Receive Date: 20180209
  Receipt Date: 20180209
  Transmission Date: 20180509
  Serious: Yes (Other)
  Sender: FDA-Public Use
  Company Number: AR-ACCORD-063282

PATIENT
  Age: 68 Year
  Sex: Female

DRUGS (1)
  1. METHOTREXATE. [Suspect]
     Active Substance: METHOTREXATE
     Indication: OSTEOARTHRITIS
     Dosage: 7.5 MG /DAY / 20 DAYS

REACTIONS (6)
  - Skin ulcer [Recovered/Resolved]
  - Psoriasis [Recovered/Resolved]
  - Medication error [Unknown]
  - Accidental overdose [Unknown]
  - Stomatitis [Recovered/Resolved]
  - Pancytopenia [Unknown]
